FAERS Safety Report 5460415-X (Version None)
Quarter: 2007Q3

REPORT INFORMATION
  Report Type: 
  Country: None (occurrence: None)
  Receive Date: 20070919
  Receipt Date: 20070822
  Transmission Date: 20080115
  Serious: Yes (Other)
  Sender: FDA-Public Use
  Company Number: NO-ASTRAZENECA-2007SE04515

PATIENT
  Age: 41 Year
  Sex: Female

DRUGS (14)
  1. SEROQUEL [Suspect]
     Indication: DEPRESSION
     Route: 048
     Dates: start: 20050101
  2. SEROQUEL [Suspect]
     Indication: MENTAL DISORDER
     Route: 048
     Dates: start: 20050101
  3. CIPRALEX [Suspect]
     Indication: DEPRESSION
  4. CIPRALEX [Suspect]
     Indication: MENTAL DISORDER
  5. CIPRALEX [Suspect]
  6. CIPRALEX [Suspect]
  7. LAMICTAL [Suspect]
     Indication: DEPRESSION
  8. LAMICTAL [Suspect]
     Indication: MENTAL DISORDER
  9. LAMICTAL [Suspect]
  10. LAMICTAL [Suspect]
  11. LYRICA [Suspect]
     Indication: DEPRESSION
     Route: 048
  12. LYRICA [Suspect]
     Indication: MENTAL DISORDER
     Route: 048
  13. STESOLID [Suspect]
     Indication: DEPRESSION
  14. STESOLID [Suspect]
     Indication: MENTAL DISORDER

REACTIONS (2)
  - ABORTION SPONTANEOUS [None]
  - DRUG EXPOSURE DURING PREGNANCY [None]
